FAERS Safety Report 21220645 (Version 1)
Quarter: 2022Q3

REPORT INFORMATION
  Report Type: Spontaneous
  Country: US (occurrence: US)
  Receive Date: 20220817
  Receipt Date: 20220817
  Transmission Date: 20221026
  Serious: No
  Sender: FDA-Public Use
  Company Number: US-HORIZON THERAPEUTICS-HZN-2022-003575

PATIENT

DRUGS (2)
  1. TEPEZZA [Suspect]
     Active Substance: TEPROTUMUMAB-TRBW
     Indication: Product used for unknown indication
     Dosage: FIRST DOSE
     Route: 042
  2. TEPEZZA [Suspect]
     Active Substance: TEPROTUMUMAB-TRBW
     Dosage: 2ND INFUSION
     Route: 042

REACTIONS (5)
  - Ear pain [Not Recovered/Not Resolved]
  - Toothache [Not Recovered/Not Resolved]
  - Blood pressure increased [Unknown]
  - Blood glucose increased [Unknown]
  - Headache [Not Recovered/Not Resolved]
